FAERS Safety Report 7777617-X (Version None)
Quarter: 2011Q3

REPORT INFORMATION
  Report Type: 
  Country: None (occurrence: None)
  Receive Date: 20110926
  Receipt Date: 20110916
  Transmission Date: 20111222
  Serious: Yes (Hospitalization)
  Sender: FDA-Public Use
  Company Number: FR-BAYER-2011-087969

PATIENT
  Age: 27 Year
  Sex: Female

DRUGS (6)
  1. FLAGYL [Suspect]
     Indication: FISTULA
     Dosage: 1 DF, QID
     Route: 048
     Dates: start: 20110629, end: 20110703
  2. CIPROFLOXACIN [Suspect]
     Indication: FISTULA
     Dosage: 500 MG, BID
     Route: 048
     Dates: start: 20110629, end: 20110703
  3. OXAZEPAM [Concomitant]
     Dosage: 1 DF, QD
     Route: 048
  4. IMURAN [Suspect]
     Indication: FISTULA
     Dosage: 2 DF, QD
     Route: 048
     Dates: start: 20110629, end: 20110703
  5. PAROXETINE HCL [Concomitant]
     Dosage: 0.5 DF, QD
     Route: 048
  6. HUMIRA [Concomitant]
     Indication: CROHN'S DISEASE
     Dosage: 1 DF, OW
     Route: 058
     Dates: start: 20110301

REACTIONS (1)
  - VASCULAR PURPURA [None]
